FAERS Safety Report 8248729-1 (Version None)
Quarter: 2012Q1

REPORT INFORMATION
  Report Type: 
  Country: None (occurrence: None)
  Receive Date: 20120331
  Receipt Date: 20120326
  Transmission Date: 20120608
  Serious: Yes (Death, Life-Threatening, Hospitalization, Other)
  Sender: FDA-Public Use
  Company Number: PHFR2010GB00529

PATIENT
  Sex: Male

DRUGS (7)
  1. HALOPERIDOL [Concomitant]
  2. CLOZARIL [Suspect]
     Indication: SCHIZOPHRENIA
     Dosage: 150 MG, (50 MG AM, 100 MG PM)
     Route: 048
     Dates: start: 19990722, end: 20120125
  3. ANTIBIOTICS [Concomitant]
     Indication: PYREXIA
     Route: 042
  4. IBUPROFEN [Concomitant]
     Indication: MUSCULOSKELETAL PAIN
     Route: 048
  5. NEUPOGEN [Concomitant]
  6. CLOZARIL [Suspect]
     Route: 048
     Dates: start: 20010701, end: 20120125
  7. LOPERAMIDE [Concomitant]
     Dosage: 4 MG, UNK
     Route: 048
     Dates: start: 20100817

REACTIONS (22)
  - PAIN [None]
  - DIZZINESS [None]
  - WHITE BLOOD CELL COUNT INCREASED [None]
  - NON-HODGKIN'S LYMPHOMA [None]
  - PLATELET COUNT DECREASED [None]
  - CIRCULATORY COLLAPSE [None]
  - MEAN CELL VOLUME DECREASED [None]
  - NEUTROPHIL COUNT INCREASED [None]
  - LOSS OF CONSCIOUSNESS [None]
  - PYREXIA [None]
  - NEOPLASM MALIGNANT [None]
  - INFECTION [None]
  - MALAISE [None]
  - BONE NEOPLASM MALIGNANT [None]
  - PLEURAL EFFUSION [None]
  - NEUTROPHIL COUNT DECREASED [None]
  - HAEMOGLOBIN DECREASED [None]
  - NEUTROPENIA [None]
  - MEAN CELL HAEMOGLOBIN DECREASED [None]
  - LYMPHOCYTE COUNT DECREASED [None]
  - WHITE BLOOD CELL COUNT DECREASED [None]
  - DIFFERENTIAL WHITE BLOOD CELL COUNT ABNORMAL [None]
